FAERS Safety Report 26087561 (Version 1)
Quarter: 2025Q4

REPORT INFORMATION
  Report Type: Report from Study
  Country: CA (occurrence: CA)
  Receive Date: 20251125
  Receipt Date: 20251125
  Transmission Date: 20260118
  Serious: Yes (Hospitalization, Other)
  Sender: TAKEDA
  Company Number: CA-TAKEDA-2025TUS104236

PATIENT
  Age: 57 Year
  Sex: Male

DRUGS (2)
  1. FRUQUINTINIB [Suspect]
     Active Substance: FRUQUINTINIB
     Indication: Colorectal cancer metastatic
     Dosage: 5 MILLIGRAM
  2. REGORAFENIB [Concomitant]
     Active Substance: REGORAFENIB
     Dosage: UNK

REACTIONS (3)
  - Colorectal cancer metastatic [Unknown]
  - Cancer pain [Unknown]
  - Nausea [Unknown]
